FAERS Safety Report 23818038 (Version 2)
Quarter: 2024Q3

REPORT INFORMATION
  Report Type: Spontaneous
  Country: US (occurrence: US)
  Receive Date: 20240506
  Receipt Date: 20240708
  Transmission Date: 20241017
  Serious: No
  Sender: SANOFI AVENTIS
  Company Number: US-SANOFI-02027125

PATIENT
  Age: 35 Year
  Sex: Female

DRUGS (6)
  1. ADMELOG [Suspect]
     Active Substance: INSULIN LISPRO
     Indication: Type 2 diabetes mellitus
     Dosage: (28 UNITS, 32 UNITS AND 30 UNITS), TID
     Route: 065
  2. ADMELOG [Suspect]
     Active Substance: INSULIN LISPRO
     Dosage: 34U, 44U, 38U TID
     Route: 065
  3. METFORMIN [Concomitant]
     Active Substance: METFORMIN HYDROCHLORIDE
  4. METFORMIN [Concomitant]
     Active Substance: METFORMIN HYDROCHLORIDE
  5. HUMULIN N [Concomitant]
     Active Substance: INSULIN HUMAN
  6. HUMULIN N [Concomitant]
     Active Substance: INSULIN HUMAN

REACTIONS (1)
  - Maternal exposure during pregnancy [Unknown]
